FAERS Safety Report 25673475 (Version 2)
Quarter: 2025Q3

REPORT INFORMATION
  Report Type: Spontaneous
  Country: US (occurrence: US)
  Receive Date: 20250813
  Receipt Date: 20250821
  Transmission Date: 20251020
  Serious: No
  Sender: ROCHE
  Company Number: US-ROCHE-10000357050

PATIENT
  Sex: Female

DRUGS (1)
  1. ACTEMRA [Suspect]
     Active Substance: TOCILIZUMAB
     Indication: Rheumatoid arthritis
     Dosage: STRENGTH AND DOSE:162MG/0.9ML
     Route: 058
     Dates: start: 202505

REACTIONS (2)
  - Injection site reaction [Recovered/Resolved]
  - Inflammation [Recovered/Resolved]
